FAERS Safety Report 8015409-7 (Version None)
Quarter: 2011Q4

REPORT INFORMATION
  Report Type: 
  Country: None (occurrence: None)
  Receive Date: 20111230
  Receipt Date: 20111219
  Transmission Date: 20120403
  Serious: Yes (Other)
  Sender: FDA-Public Use
  Company Number: IT-BRISTOL-MYERS SQUIBB COMPANY-16301699

PATIENT
  Age: 41 Year
  Sex: Female

DRUGS (5)
  1. ABILIFY [Suspect]
     Route: 048
     Dates: start: 20070101, end: 20111111
  2. BROMAZEPAM [Concomitant]
  3. SOTALOL HCL [Concomitant]
  4. ESCITALOPRAM [Concomitant]
  5. LASIX [Concomitant]

REACTIONS (1)
  - OPTIC NEURITIS [None]
